FAERS Safety Report 13747378 (Version 1)
Quarter: 2017Q3

REPORT INFORMATION
  Report Type: Spontaneous
  Country: US (occurrence: US)
  Receive Date: 20170712
  Receipt Date: 20170712
  Transmission Date: 20171127
  Serious: No
  Sender: FDA-Public Use
  Company Number: US-VIRTUS PHARMACEUTICALS, LLC-2017VTS00013

PATIENT
  Age: 61 Year
  Sex: Female

DRUGS (2)
  1. ^HORMONES^ (UNSPECIFIED) [Suspect]
     Active Substance: UNSPECIFIED INGREDIENT
  2. PROGESTERONE. [Suspect]
     Active Substance: PROGESTERONE

REACTIONS (5)
  - Feeling jittery [Unknown]
  - Dizziness [Unknown]
  - Insomnia [Unknown]
  - Anxiety [Unknown]
  - Tremor [Unknown]
